FAERS Safety Report 9530105 (Version 1)
Quarter: 2013Q3

REPORT INFORMATION
  Report Type: Spontaneous
  Country: BR (occurrence: BR)
  Receive Date: 20130917
  Receipt Date: 20130917
  Transmission Date: 20140515
  Serious: Yes (Hospitalization, Other)
  Sender: FDA-Public Use
  Company Number: BR-PFIZER INC-2013266431

PATIENT
  Age: 69 Year
  Sex: Female
  Weight: 85 kg

DRUGS (6)
  1. FRONTAL [Suspect]
     Indication: SLEEP DISORDER
     Dosage: 0.5 MG, 1X/DAY (HALF OF 1MG TABLET)
     Route: 048
     Dates: start: 2007, end: 201203
  2. BENALET [Concomitant]
  3. CALCITRIOL [Concomitant]
     Indication: BLOOD CALCIUM ABNORMAL
  4. DIOVAN [Concomitant]
     Indication: HYPERTENSION
  5. PURAN T4 [Concomitant]
     Indication: HORMONE REPLACEMENT THERAPY
  6. VENLIFT [Concomitant]
     Indication: DEPRESSION

REACTIONS (1)
  - Thyroid neoplasm [Unknown]
